FAERS Safety Report 4704052-0 (Version None)
Quarter: 2005Q2

REPORT INFORMATION
  Report Type: 
  Country: None (occurrence: None)
  Receive Date: 20050630
  Receipt Date: 20050620
  Transmission Date: 20051028
  Serious: Yes (Hospitalization)
  Sender: FDA-Public Use
  Company Number: GB-ROCHE-408238

PATIENT
  Age: 39 Year
  Sex: Female

DRUGS (3)
  1. ROCEPHIN [Suspect]
     Indication: PNEUMONIA STREPTOCOCCAL
     Route: 042
     Dates: start: 20050511, end: 20050520
  2. CLARITHROMYCIN [Suspect]
     Indication: PNEUMONIA STREPTOCOCCAL
     Route: 050
     Dates: start: 20050511, end: 20050520
  3. ELOCON [Concomitant]
     Indication: ECZEMA
     Route: 061
     Dates: start: 20050415

REACTIONS (3)
  - GALLBLADDER DISORDER [None]
  - LIVER FUNCTION TEST ABNORMAL [None]
  - OCULAR ICTERUS [None]
